FAERS Safety Report 9516021 (Version 1)
Quarter: 2013Q3

REPORT INFORMATION
  Report Type: Spontaneous
  Country: BR (occurrence: BR)
  Receive Date: 20130911
  Receipt Date: 20130911
  Transmission Date: 20140515
  Serious: Yes (Hospitalization)
  Sender: FDA-Public Use
  Company Number: BR-BIOMARINAP-BR-2013-101421

PATIENT
  Sex: Female
  Weight: 25.5 kg

DRUGS (1)
  1. NAGLAZYME [Suspect]
     Indication: MUCOPOLYSACCHARIDOSIS VI
     Dosage: UNK UNK, QW
     Route: 041
     Dates: start: 20090904

REACTIONS (3)
  - Pneumonia [Not Recovered/Not Resolved]
  - Pyrexia [Unknown]
  - Productive cough [Unknown]
